FAERS Safety Report 10160727 (Version 1)
Quarter: 2014Q2

REPORT INFORMATION
  Report Type: Spontaneous
  Country: US (occurrence: US)
  Receive Date: 20140508
  Receipt Date: 20140508
  Transmission Date: 20141212
  Serious: Yes (Disabling)
  Sender: FDA-Public Use
  Company Number: US-PERRIGO-14US004525

PATIENT
  Sex: Female

DRUGS (1)
  1. DAYTIME PE ORIG LIQ 656 [Suspect]
     Indication: NASOPHARYNGITIS
     Dosage: 30 ML, SINGLE
     Route: 048
     Dates: start: 20140421, end: 20140421

REACTIONS (6)
  - Hypersensitivity [Recovered/Resolved]
  - Dizziness [Recovered/Resolved]
  - Abdominal pain upper [Recovered/Resolved]
  - Nausea [Recovered/Resolved]
  - Malaise [Recovered/Resolved]
  - Activities of daily living impaired [Recovered/Resolved]
